FAERS Safety Report 8303615-3 (Version None)
Quarter: 2012Q2

REPORT INFORMATION
  Report Type: 
  Country: None (occurrence: None)
  Receive Date: 20120413
  Receipt Date: 20120402
  Transmission Date: 20120825
  Serious: Yes (Other)
  Sender: FDA-Public Use
  Company Number: CA-145261

PATIENT
  Sex: Female

DRUGS (2)
  1. PAXIL [Concomitant]
  2. WINRHO SDF LIQUID [Suspect]
     Indication: PROPHYLAXIS AGAINST RH ISOIMMUNISATION
     Dosage: (300 UG TOTAL)
     Dates: start: 20110616, end: 20110616

REACTIONS (11)
  - STILLBIRTH [None]
  - GESTATIONAL DIABETES [None]
  - PRE-ECLAMPSIA [None]
  - MATERNAL EXPOSURE DURING PREGNANCY [None]
  - UMBILICAL CORD AROUND NECK [None]
  - FOETAL DEATH [None]
  - BLOOD PRESSURE INCREASED [None]
  - BLOOD PRESSURE DIASTOLIC INCREASED [None]
  - HEADACHE [None]
  - OEDEMA [None]
  - REFUSAL OF TREATMENT BY PATIENT [None]
